FAERS Safety Report 9084629 (Version 1)
Quarter: 2013Q1

REPORT INFORMATION
  Report Type: Spontaneous
  Country: IT (occurrence: IT)
  Receive Date: 20130218
  Receipt Date: 20130218
  Transmission Date: 20140127
  Serious: Yes (Hospitalization)
  Sender: FDA-Public Use
  Company Number: PHHY2013IT015257

PATIENT
  Age: 37 Year
  Sex: Female

DRUGS (5)
  1. CARBAMAZEPINE [Suspect]
     Indication: DEPRESSION
     Dosage: 1 POSOLOGIC UNIT DAILY
     Dates: start: 20120301, end: 20120730
  2. LITHIUM [Concomitant]
  3. VALPROIC ACID [Concomitant]
  4. ANTIDEPRESSANTS [Concomitant]
  5. CHARCOAL ACTIVATED [Suspect]

REACTIONS (2)
  - Syncope [Unknown]
  - Agitation [Unknown]
